FAERS Safety Report 8119507-9 (Version None)
Quarter: 2012Q1

REPORT INFORMATION
  Report Type: 
  Country: None (occurrence: None)
  Receive Date: 20120207
  Receipt Date: 20120130
  Transmission Date: 20120608
  Serious: Yes (Hospitalization)
  Sender: FDA-Public Use
  Company Number: PHHY2011AU112909

PATIENT
  Sex: Male

DRUGS (3)
  1. QUETIAPINE [Concomitant]
  2. LITHIUM CARBONATE [Suspect]
  3. CLOZARIL [Suspect]
     Dosage: 225 MG, UNK
     Dates: start: 20040209, end: 20111223

REACTIONS (3)
  - ANTIPSYCHOTIC DRUG LEVEL INCREASED [None]
  - SCHIZOPHRENIA [None]
  - POISONING [None]
